FAERS Safety Report 9925026 (Version 1)
Quarter: 2014Q1

REPORT INFORMATION
  Report Type: Spontaneous
  Country: US (occurrence: None)
  Receive Date: 20140225
  Receipt Date: 20140225
  Transmission Date: 20141002
  Serious: Yes (Other)
  Sender: FDA-Public Use
  Company Number: None

PATIENT
  Age: 15 Year
  Sex: Female

DRUGS (1)
  1. CETRIZINE [Suspect]
     Indication: MULTIPLE ALLERGIES
     Dosage: NIGHTLY ONCE DAILY
     Route: 048

REACTIONS (1)
  - Pruritus [None]
